FAERS Safety Report 8478971-6 (Version None)
Quarter: 2012Q2

REPORT INFORMATION
  Report Type: 
  Country: None (occurrence: None)
  Receive Date: 20120629
  Receipt Date: 20120614
  Transmission Date: 20120825
  Serious: Yes (Death, Other)
  Sender: FDA-Public Use
  Company Number: FR-ROCHE-251515

PATIENT
  Age: 18 Year
  Sex: Male

DRUGS (13)
  1. CLOPIXOL [Suspect]
     Dosage: FORM STRENGTH=100 MG/2ML
     Route: 030
     Dates: start: 20001208, end: 20001208
  2. VALPROIC ACID [Concomitant]
  3. RISPERDAL [Suspect]
     Indication: PRODUCT USED FOR UNKNOWN INDICATION
     Route: 048
     Dates: start: 20001207, end: 20001207
  4. LEPTICUR [Concomitant]
  5. CLONAZEPAM [Suspect]
     Dosage: FORM STRENGTH=2.5 MG/ML
     Route: 048
     Dates: start: 20001207, end: 20001207
  6. CLOPIXOL [Suspect]
     Dosage: FORM STRENGTH=100 MG/2ML
     Route: 030
     Dates: start: 20001206, end: 20001206
  7. LEVOMEPROMAZINE [Suspect]
     Indication: PRODUCT USED FOR UNKNOWN INDICATION
     Dosage: FORM STRENGTH=25 MG/ML
     Route: 030
     Dates: start: 20001208, end: 20001210
  8. TERCIAN [Concomitant]
  9. CANNABIS [Concomitant]
  10. LEVOMEPROMAZINE [Concomitant]
     Route: 048
  11. CLONAZEPAM [Suspect]
     Indication: PRODUCT USED FOR UNKNOWN INDICATION
     Dosage: THE PATIENT RECEIVED 10 DROPS AT NIGHT FORM STRENGTH=2.5 MG/ML
     Route: 048
     Dates: start: 20001206, end: 20001206
  12. CLOPIXOL [Suspect]
     Indication: PRODUCT USED FOR UNKNOWN INDICATION
     Dosage: THE DOSE WAS 50-50-150 BUT THE PATIENT WOULD HAVE TAKEN ONLY HALF OF THE PRESCRIBED MEDICATION.
     Route: 048
  13. RISPERDAL [Suspect]
     Dosage: MEDICATION NOT TAKEN BY THE PATIENT
     Route: 048
     Dates: start: 20001208, end: 20001209

REACTIONS (7)
  - PYREXIA [None]
  - RESPIRATORY ARREST [None]
  - AGITATION [None]
  - LOCALISED OEDEMA [None]
  - CARDIAC ARREST [None]
  - PICA [None]
  - SINUS TACHYCARDIA [None]
